FAERS Safety Report 12421035 (Version 1)
Quarter: 2016Q2

REPORT INFORMATION
  Report Type: Spontaneous
  Country: US (occurrence: US)
  Receive Date: 20160531
  Receipt Date: 20160531
  Transmission Date: 20160815
  Serious: No
  Sender: FDA-Public Use
  Company Number: US-BAYER-2016-098446

PATIENT
  Age: 66 Year
  Sex: Female

DRUGS (1)
  1. CLIMARA PRO [Suspect]
     Active Substance: ESTRADIOL\LEVONORGESTREL
     Indication: HORMONE REPLACEMENT THERAPY
     Dosage: UNK
     Route: 062
     Dates: start: 20160507, end: 2016

REACTIONS (8)
  - Application site pain [None]
  - Application site pruritus [None]
  - Application site erythema [Not Recovered/Not Resolved]
  - Excoriation [None]
  - Product quality issue [None]
  - Product use issue [None]
  - Skin disorder [None]
  - Product physical issue [None]

NARRATIVE: CASE EVENT DATE: 2016
